FAERS Safety Report 5551647-0 (Version None)
Quarter: 2007Q4

REPORT INFORMATION
  Report Type: 
  Country: None (occurrence: None)
  Receive Date: 20071212
  Receipt Date: 20071129
  Transmission Date: 20080405
  Serious: No
  Sender: FDA-Public Use
  Company Number: US-ELI_LILLY_AND_COMPANY-US200710006393

PATIENT
  Age: 80 Year
  Sex: Female
  Weight: 65.76 kg

DRUGS (6)
  1. FORTEO [Suspect]
     Indication: OSTEOPOROSIS
     Dosage: 20 UG, DAILY (1/D)
     Dates: start: 20071024
  2. FORTEO [Suspect]
     Dosage: 20 UG, DAILY (1/D)
     Dates: end: 20071106
  3. SOTALOL HYDROCHLORIDE [Concomitant]
  4. ZOCOR [Concomitant]
  5. OMEPRAZOLE [Concomitant]
  6. ASPIRIN [Concomitant]

REACTIONS (1)
  - PALPITATIONS [None]
